FAERS Safety Report 9375137 (Version 4)
Quarter: 2013Q4

REPORT INFORMATION
  Report Type: Spontaneous
  Country: US (occurrence: US)
  Receive Date: 20130628
  Receipt Date: 20131230
  Transmission Date: 20140711
  Serious: No
  Sender: FDA-Public Use
  Company Number: US-PFIZER INC-2013189032

PATIENT
  Age: 77 Year
  Sex: Male

DRUGS (1)
  1. SUTENT [Suspect]
     Indication: METASTATIC RENAL CELL CARCINOMA
     Dosage: 37.5 MG, 1X/DAY (3 WEEKS ON AND 1 WEEK OFF) 4 MONTHS
     Route: 048
     Dates: start: 20130429, end: 20130909

REACTIONS (6)
  - Dysgeusia [Recovered/Resolved]
  - Musculoskeletal discomfort [Recovered/Resolved]
  - Arthritis [Unknown]
  - Constipation [Recovered/Resolved]
  - Abdominal distension [Recovered/Resolved]
  - Dyspnoea [Not Recovered/Not Resolved]
